FAERS Safety Report 24576343 (Version 1)
Quarter: 2024Q4

REPORT INFORMATION
  Report Type: Spontaneous
  Country: FR (occurrence: FR)
  Receive Date: 20241104
  Receipt Date: 20241104
  Transmission Date: 20250115
  Serious: Yes (Hospitalization)
  Sender: ORGANON
  Company Number: None

PATIENT
  Age: 6 Month
  Sex: Female
  Weight: 4.5 kg

DRUGS (3)
  1. BETAMETHASONE [Suspect]
     Active Substance: BETAMETHASONE
     Indication: Bronchopulmonary dysplasia
     Dosage: UNK (SOLUTION INJECTABLE)
     Route: 042
     Dates: start: 2024
  2. METHYLPREDNISOLONE [Suspect]
     Active Substance: METHYLPREDNISOLONE
     Indication: Bronchopulmonary dysplasia
     Dosage: 300 MILLIGRAM/SQ. METER, QD
     Route: 042
     Dates: start: 20240520, end: 20240607
  3. METHYLPREDNISOLONE SODIUM SUCCINATE [Suspect]
     Active Substance: METHYLPREDNISOLONE SODIUM SUCCINATE
     Indication: Bronchopulmonary dysplasia
     Dosage: 0.9 MILLIGRAM/KILOGRAM, QD
     Route: 048
     Dates: start: 20240607

REACTIONS (1)
  - Femur fracture [Recovered/Resolved]

NARRATIVE: CASE EVENT DATE: 20240611
